FAERS Safety Report 19955487 (Version 1)
Quarter: 2021Q4

REPORT INFORMATION
  Report Type: Spontaneous
  Country: CN (occurrence: CN)
  Receive Date: 20211013
  Receipt Date: 20211013
  Transmission Date: 20220303
  Serious: Yes (Other)
  Sender: FDA-Public Use
  Company Number: CN-BAXTER-2021BAX029304

PATIENT
  Age: 29 Year
  Sex: Male
  Weight: 54 kg

DRUGS (24)
  1. CYCLOPHOSPHAMIDE [Suspect]
     Active Substance: CYCLOPHOSPHAMIDE
     Indication: Non-Hodgkin^s lymphoma
     Dosage: 1ST CHEMOTHERAPY
     Route: 041
  2. CYCLOPHOSPHAMIDE [Suspect]
     Active Substance: CYCLOPHOSPHAMIDE
     Dosage: CYCLOPHOSPHAMIDE 1.1G +0.9% NS 100ML, SECOND CHEMOTHERAPY
     Route: 041
     Dates: start: 20190420, end: 20190420
  3. CYCLOPHOSPHAMIDE [Suspect]
     Active Substance: CYCLOPHOSPHAMIDE
     Dosage: DOSE REINTRODUCED.
     Route: 041
  4. SODIUM CHLORIDE [Suspect]
     Active Substance: SODIUM CHLORIDE
     Indication: Medication dilution
     Dosage: SECOND CHEMOTHERAPY ,0.9% NS 100ML + RITUXIMAB 100 MG
     Route: 041
     Dates: start: 20190415, end: 20190415
  5. SODIUM CHLORIDE [Suspect]
     Active Substance: SODIUM CHLORIDE
     Dosage: SECOND CHEMOTHERAPY, 0.9% NS 300ML + RITUXIMAB 500MG
     Route: 041
     Dates: start: 20190415, end: 20190415
  6. SODIUM CHLORIDE [Suspect]
     Active Substance: SODIUM CHLORIDE
     Dosage: SECOND CHEMOTHERAPY, 0.9% NS 300ML + ETOPOSIDE 0.078G + VINDESINE 1 MG MICROCOMPUTER PUMP
     Route: 041
     Dates: start: 20190416, end: 20190420
  7. SODIUM CHLORIDE [Suspect]
     Active Substance: SODIUM CHLORIDE
     Dosage: 0.9% NS 100ML + CYCLOPHOSPHAMIDE 1.1G
     Route: 041
     Dates: start: 20190420, end: 20190420
  8. DEXTROSE [Suspect]
     Active Substance: DEXTROSE
     Indication: Medication dilution
     Dosage: SECOND CHEMOTHERAPY, 5% GS 250ML + DOXORUBICIN LIPOSOME 20 MG
     Route: 041
     Dates: start: 20190416, end: 20190418
  9. MABTHERA [Suspect]
     Active Substance: RITUXIMAB
     Indication: Non-Hodgkin^s lymphoma
     Dosage: 1ST CHEMOTHERAPY
     Route: 065
  10. MABTHERA [Suspect]
     Active Substance: RITUXIMAB
     Dosage: SECOND CHEMOTHERAPY, 0.9% NS 100ML + RITUXIMAB 100 MG
     Route: 041
     Dates: start: 20200415, end: 20200415
  11. MABTHERA [Suspect]
     Active Substance: RITUXIMAB
     Dosage: SECOND CHEMOTHERAPY ,0.9% NS 500ML + RITUXIMAB 500 MG
     Route: 041
     Dates: start: 20200415, end: 20200415
  12. MABTHERA [Suspect]
     Active Substance: RITUXIMAB
     Dosage: DOSE REINTRODUCED.
     Route: 041
  13. DOXORUBICIN HYDROCHLORIDE [Suspect]
     Active Substance: DOXORUBICIN HYDROCHLORIDE
     Indication: Non-Hodgkin^s lymphoma
     Dosage: 1ST CHEMOTHERAPY
     Route: 041
  14. DOXORUBICIN HYDROCHLORIDE [Suspect]
     Active Substance: DOXORUBICIN HYDROCHLORIDE
     Dosage: 5% GS 250ML + DOXORUBICIN LIPOSOME 20 MG, SECOND CHEMOTHERAPY
     Route: 041
     Dates: start: 20190416, end: 20190418
  15. DOXORUBICIN HYDROCHLORIDE [Suspect]
     Active Substance: DOXORUBICIN HYDROCHLORIDE
     Dosage: DOSE REINTRODUCED
     Route: 041
  16. VINDESINE SULFATE [Suspect]
     Active Substance: VINDESINE SULFATE
     Indication: Non-Hodgkin^s lymphoma
     Dosage: 1ST CHEMOTHERAPY
     Route: 065
  17. VINDESINE SULFATE [Suspect]
     Active Substance: VINDESINE SULFATE
     Dosage: 0.9% NS 300ML + ETOPOSIDE 0.078G + VINDESINE 1 MG, SECOND CHEMOTHERAPY
     Route: 050
     Dates: start: 20190416, end: 20190420
  18. VINDESINE SULFATE [Suspect]
     Active Substance: VINDESINE SULFATE
     Dosage: DOSE REINTRODUCED
     Route: 050
  19. PREDNISONE ACETATE [Suspect]
     Active Substance: PREDNISONE ACETATE
     Indication: Non-Hodgkin^s lymphoma
     Dosage: 1ST CHEMOTHERAPY
     Route: 048
  20. PREDNISONE ACETATE [Suspect]
     Active Substance: PREDNISONE ACETATE
     Dosage: SECOND CHEMOTHERAPY
     Route: 048
     Dates: start: 20190416, end: 20190420
  21. PREDNISONE ACETATE [Suspect]
     Active Substance: PREDNISONE ACETATE
     Dosage: TABLET; DOSE REINTRODUCED
     Route: 048
  22. ETOPOSIDE [Suspect]
     Active Substance: ETOPOSIDE
     Indication: Non-Hodgkin^s lymphoma
     Dosage: 1ST CHEMOTHERAPY
     Route: 065
  23. ETOPOSIDE [Suspect]
     Active Substance: ETOPOSIDE
     Dosage: SECOND CHEMOTHERAPY, 0.9% NS 300ML + ETOPOSIDE 0.078G + VINDESINE 1 MG
     Route: 050
     Dates: start: 20190416, end: 20190418
  24. ETOPOSIDE [Suspect]
     Active Substance: ETOPOSIDE
     Dosage: DOSE REINTRODUCED, 0.9% NS 300ML + ETOPOSIDE
     Route: 050

REACTIONS (1)
  - Hepatic function abnormal [Recovering/Resolving]

NARRATIVE: CASE EVENT DATE: 20190502
